FAERS Safety Report 5244859-7 (Version None)
Quarter: 2007Q1

REPORT INFORMATION
  Report Type: 
  Country: None (occurrence: None)
  Receive Date: 20070221
  Receipt Date: 20070221
  Transmission Date: 20070707
  Serious: No
  Sender: FDA-Public Use
  Company Number: None

PATIENT
  Age: 66 Year
  Sex: Female
  Weight: 60 kg

DRUGS (6)
  1. TUBERCULIN PPD, 5TU/0.1ML, PARKEDALE PHARMACEUTICALS [Suspect]
     Indication: TUBERCULIN TEST
     Dosage: 0.1 UNITS (STU) ONCE INTRADERMA
     Route: 023
     Dates: start: 20061213
  2. FELODIPINE [Concomitant]
  3. RAMIPRIL [Concomitant]
  4. SALCALATE [Concomitant]
  5. GABAPENTIN [Concomitant]
  6. CALCIUM CARBONATE [Concomitant]

REACTIONS (2)
  - PHARMACEUTICAL PRODUCT COMPLAINT [None]
  - TUBERCULOSIS SKIN TEST POSITIVE [None]
